FAERS Safety Report 16069230 (Version 2)
Quarter: 2019Q2

REPORT INFORMATION
  Report Type: Spontaneous
  Country: IT (occurrence: IT)
  Receive Date: 20190313
  Receipt Date: 20190508
  Transmission Date: 20190711
  Serious: Yes (Other)
  Sender: FDA-Public Use
  Company Number: IT-ALLERGAN-1910556US

PATIENT
  Sex: Female

DRUGS (5)
  1. TERIPARATIDE [Suspect]
     Active Substance: TERIPARATIDE
     Indication: PRODUCT USED FOR UNKNOWN INDICATION
     Dosage: 20 ?G, QD
     Route: 065
  2. RAMIPRIL. [Concomitant]
     Active Substance: RAMIPRIL
     Dosage: UNK
  3. VITAMIN D NOS [Suspect]
     Active Substance: VITAMIN D NOS
     Indication: THYROID CANCER
     Dosage: 50000 DF, Q MONTH
     Route: 048
  4. RISEDRONATE SODIUM - BP [Suspect]
     Active Substance: RISEDRONATE SODIUM
     Indication: THYROID CANCER
     Dosage: 35 MG, Q WEEK
     Route: 065
  5. CALCIUM [Suspect]
     Active Substance: CALCIUM
     Indication: THYROID CANCER
     Dosage: 1 G, Q MONTH
     Route: 048

REACTIONS (4)
  - Calciphylaxis [Recovered/Resolved]
  - Pain [Recovered/Resolved]
  - Ulcer [Recovered/Resolved]
  - Off label use [Unknown]
